FAERS Safety Report 7713688-4 (Version None)
Quarter: 2011Q3

REPORT INFORMATION
  Report Type: 
  Country: None (occurrence: None)
  Receive Date: 20110826
  Receipt Date: 20110818
  Transmission Date: 20111222
  Serious: Yes (Other)
  Sender: FDA-Public Use
  Company Number: FR-B.I. PHARMACEUTICALS,INC./RIDGEFIELD-2011-FF-00774FF

PATIENT
  Age: 58 Year
  Sex: Female

DRUGS (3)
  1. PRAMIPEXOLE DIHYDROCHLORIDE [Suspect]
     Indication: EXTRAPYRAMIDAL DISORDER
     Route: 048
     Dates: end: 20110301
  2. PRAMIPEXOLE DIHYDROCHLORIDE [Suspect]
     Indication: EXTRAPYRAMIDAL DISORDER
     Dosage: 2.36 MG
     Route: 048
     Dates: start: 20110401
  3. NEUPRO [Concomitant]
     Indication: EXTRAPYRAMIDAL DISORDER
     Dates: start: 20110301, end: 20110401

REACTIONS (1)
  - MITRAL VALVE PROLAPSE [None]
